FAERS Safety Report 16877858 (Version 8)
Quarter: 2020Q3

REPORT INFORMATION
  Report Type: Spontaneous
  Country: JP (occurrence: JP)
  Receive Date: 20191002
  Receipt Date: 20200817
  Transmission Date: 20201102
  Serious: Yes (Hospitalization, Other)
  Sender: FDA-Public Use
  Company Number: JP-AMGEN-JPNSP2019158294

PATIENT
  Age: 65 Year
  Sex: Female
  Weight: 54.9 kg

DRUGS (41)
  1. PARSABIV [Suspect]
     Active Substance: ETELCALCETIDE HYDROCHLORIDE
     Dosage: 2.5 MILLIGRAM, 3 TIMES/WK
     Route: 010
     Dates: start: 20181225, end: 20190323
  2. NESP [Concomitant]
     Active Substance: DARBEPOETIN ALFA
     Dosage: 40 MICROGRAM, QWK
     Route: 065
     Dates: start: 20190910, end: 20191119
  3. NESP [Concomitant]
     Active Substance: DARBEPOETIN ALFA
     Dosage: 20 MICROGRAM, QWK
     Route: 065
     Dates: start: 20191126, end: 20191203
  4. ROCALTROL [Concomitant]
     Active Substance: CALCITRIOL
     Dosage: 1 MICROGRAM, 3 TIMES/WK
     Route: 051
     Dates: start: 20190129, end: 20191109
  5. ROCALTROL [Concomitant]
     Active Substance: CALCITRIOL
     Dosage: 1 MICROGRAM, 2 TIMES/WK
     Route: 051
     Dates: start: 20200519
  6. FESIN [SACCHARATED IRON OXIDE] [Concomitant]
     Active Substance: IRON SUCROSE
     Dosage: 40 MG, QW
     Route: 065
     Dates: start: 20191029, end: 20191224
  7. ROCALTROL [Concomitant]
     Active Substance: CALCITRIOL
     Dosage: 1 MICROGRAM, 2 TIMES/WK
     Route: 051
     Dates: start: 20181009, end: 20181110
  8. ROCALTROL [Concomitant]
     Active Substance: CALCITRIOL
     Dosage: 1.0 UG, QW
     Route: 051
     Dates: start: 20181113, end: 20190112
  9. PARSABIV [Suspect]
     Active Substance: ETELCALCETIDE HYDROCHLORIDE
     Dosage: 7.5 MILLIGRAM, 3 TIMES/WK
     Route: 010
     Dates: start: 20200317
  10. NESP [Concomitant]
     Active Substance: DARBEPOETIN ALFA
     Dosage: 20 MICROGRAM, QWK
     Route: 065
     Dates: start: 20190813, end: 20190903
  11. NESP [Concomitant]
     Active Substance: DARBEPOETIN ALFA
     Dosage: 30 MICROGRAM, QWK
     Route: 065
     Dates: start: 20200317, end: 20200421
  12. ROCALTROL [Concomitant]
     Active Substance: CALCITRIOL
     Dosage: 1 MICROGRAM, 3 TIMES/WK
     Route: 051
     Dates: start: 20191210, end: 20200516
  13. OLMETEC [Concomitant]
     Active Substance: OLMESARTAN MEDOXOMIL
     Indication: HYPERTENSION
     Dosage: 20 MILLIGRAM, Q12H
     Route: 048
  14. FEBURIC [Concomitant]
     Active Substance: FEBUXOSTAT
     Dosage: 10 MG
     Route: 048
  15. NESP [Concomitant]
     Active Substance: DARBEPOETIN ALFA
     Dosage: 40 UG, QW
     Route: 065
     Dates: start: 20190312, end: 20190416
  16. NESP [Concomitant]
     Active Substance: DARBEPOETIN ALFA
     Dosage: 10 UG, QW
     Route: 065
     Dates: start: 20190611, end: 20190806
  17. ROCALTROL [Concomitant]
     Active Substance: CALCITRIOL
     Dosage: 1 MICROGRAM, 3 TIMES/WK
     Route: 051
     Dates: start: 20180802, end: 20181006
  18. ROCALTROL [Concomitant]
     Active Substance: CALCITRIOL
     Dosage: 1 MICROGRAM, 2 TIMES/WK
     Route: 051
     Dates: start: 20190115, end: 20190126
  19. NORVASC [Concomitant]
     Active Substance: AMLODIPINE BESYLATE
     Indication: HYPERTENSION
     Dosage: 5 MILLIGRAM, Q12H
     Route: 048
  20. FOSRENOL [Concomitant]
     Active Substance: LANTHANUM CARBONATE
     Indication: HYPERPHOSPHATAEMIA
     Dosage: 1000 MG, EVERYDAY
     Route: 048
     Dates: end: 20190826
  21. FOSRENOL [Concomitant]
     Active Substance: LANTHANUM CARBONATE
     Dosage: 500 MILLIGRAM, Q8H
     Route: 048
     Dates: start: 20190827
  22. CARDENALIN [Concomitant]
     Active Substance: DOXAZOSIN MESYLATE
     Dosage: 2 MG, EVERYDAY
     Route: 048
  23. NESP [Concomitant]
     Active Substance: DARBEPOETIN ALFA
     Dosage: 30 UG, QW
     Route: 065
     Dates: end: 20180703
  24. NESP [Concomitant]
     Active Substance: DARBEPOETIN ALFA
     Dosage: 20 UG, QW
     Route: 065
     Dates: start: 20180710, end: 20181002
  25. NESP [Concomitant]
     Active Substance: DARBEPOETIN ALFA
     Dosage: 30 UG, QW
     Route: 065
     Dates: start: 20190212, end: 20190305
  26. NESP [Concomitant]
     Active Substance: DARBEPOETIN ALFA
     Dosage: 20 MICROGRAM, QWK
     Route: 065
     Dates: start: 20190428
  27. PARSABIV [Suspect]
     Active Substance: ETELCALCETIDE HYDROCHLORIDE
     Dosage: 5 MILLIGRAM, 3 TIMES/WK
     Route: 010
     Dates: start: 20190326, end: 20200316
  28. ROCALTROL [Concomitant]
     Active Substance: CALCITRIOL
     Dosage: 0.5 MICROGRAM, 3 TIMES/WK
     Route: 051
     Dates: start: 20180723, end: 20180731
  29. ROCALTROL [Concomitant]
     Active Substance: CALCITRIOL
     Dosage: 1 MICROGRAM, 2 TIMES/WK
     Route: 051
     Dates: start: 20191112, end: 20191207
  30. KAYEXALATE [Concomitant]
     Active Substance: SODIUM POLYSTYRENE SULFONATE
     Dosage: 1 DOSAGE FORM, Q8H
     Route: 048
  31. FESIN [SACCHARATED IRON OXIDE] [Concomitant]
     Active Substance: IRON SUCROSE
     Dosage: 40 MG, QW
     Route: 065
     Dates: start: 20180710, end: 20180925
  32. NEXIUM [Concomitant]
     Active Substance: ESOMEPRAZOLE MAGNESIUM
     Dosage: 20 MILLIGRAM
     Route: 048
  33. PARSABIV [Suspect]
     Active Substance: ETELCALCETIDE HYDROCHLORIDE
     Indication: HYPERPARATHYROIDISM SECONDARY
     Dosage: 5 MILLIGRAM, 3 TIMES/WK
     Route: 010
     Dates: start: 20180712, end: 20181222
  34. NESP [Concomitant]
     Active Substance: DARBEPOETIN ALFA
     Dosage: 10 UG, QW
     Route: 065
     Dates: start: 20181009, end: 20190108
  35. NESP [Concomitant]
     Active Substance: DARBEPOETIN ALFA
     Dosage: 20 UG, QW
     Route: 065
     Dates: start: 20190115, end: 20190205
  36. NESP [Concomitant]
     Active Substance: DARBEPOETIN ALFA
     Dosage: 20 UG, QW
     Route: 065
     Dates: start: 20190423, end: 20190604
  37. NESP [Concomitant]
     Active Substance: DARBEPOETIN ALFA
     Dosage: 10 UG, QW
     Route: 065
     Dates: start: 20191210, end: 20200310
  38. ROCALTROL [Concomitant]
     Active Substance: CALCITRIOL
     Dosage: 0.5 MICROGRAM, 2 TIMES/WK
     Route: 051
     Dates: end: 20180721
  39. PRECIPITATED CALCIUM CARBONATE [Concomitant]
     Active Substance: CALCIUM CARBONATE
     Indication: HYPERPHOSPHATAEMIA
     Dosage: 500 MILLIGRAM, Q8H
     Route: 048
  40. GASMOTIN [Concomitant]
     Active Substance: MOSAPRIDE CITRATE
     Dosage: 5 MILLIGRAM, Q8H
     Route: 048
  41. ZETIA [Concomitant]
     Active Substance: EZETIMIBE
     Dosage: 10 MG, EVERYDAY
     Route: 048

REACTIONS (1)
  - Colitis ischaemic [Recovered/Resolved]

NARRATIVE: CASE EVENT DATE: 20190909
